FAERS Safety Report 15614332 (Version 5)
Quarter: 2019Q3

REPORT INFORMATION
  Report Type: Report from Study
  Country: US (occurrence: US)
  Receive Date: 20181113
  Receipt Date: 20190830
  Transmission Date: 20191004
  Serious: Yes (Life-Threatening, Hospitalization, Other)
  Sender: FDA-Public Use
  Company Number: US-ACTELION-A-NJ2018-181664

PATIENT
  Age: 56 Year
  Sex: Female

DRUGS (4)
  1. UPTRAVI [Suspect]
     Active Substance: SELEXIPAG
     Indication: PULMONARY ARTERIAL HYPERTENSION
     Dosage: 400 MCG, BID
     Route: 048
     Dates: start: 20170131
  2. LETAIRIS [Suspect]
     Active Substance: AMBRISENTAN
     Indication: PULMONARY HYPERTENSION
     Dosage: 10 MG, QD
     Route: 065
     Dates: start: 20161223
  3. SILDENAFIL. [Concomitant]
     Active Substance: SILDENAFIL
  4. FLUCONAZOLE. [Suspect]
     Active Substance: FLUCONAZOLE
     Indication: PRODUCT USED FOR UNKNOWN INDICATION
     Route: 065

REACTIONS (11)
  - Spinal fracture [Not Recovered/Not Resolved]
  - Myocardial infarction [Unknown]
  - Rash [Unknown]
  - Viral infection [Recovered/Resolved]
  - Drug interaction [Unknown]
  - Intervertebral discitis [Not Recovered/Not Resolved]
  - Osteomyelitis fungal [Unknown]
  - Immunodeficiency [Unknown]
  - HIV infection [Unknown]
  - Dyspnoea [Recovered/Resolved]
  - Lip swelling [Unknown]

NARRATIVE: CASE EVENT DATE: 201810
